FAERS Safety Report 5580742-5 (Version None)
Quarter: 2007Q4

REPORT INFORMATION
  Report Type: 
  Country: None (occurrence: None)
  Receive Date: 20071227
  Receipt Date: 20071220
  Transmission Date: 20080405
  Serious: Yes (Hospitalization, Other)
  Sender: FDA-Public Use
  Company Number: 07H-028-0313533-00

PATIENT
  Age: 83 Year
  Sex: Female
  Weight: 66 kg

DRUGS (2)
  1. DEXTROSE 5% [Suspect]
     Indication: ENDOMETRIAL CANCER
     Dosage: 250 ML, ONCE, INTRAVENOUS
     Route: 042
     Dates: start: 20071122, end: 20071122
  2. CARBOPLATIN [Suspect]
     Indication: ENDOMETRIAL CANCER
     Dosage: 290 MG, EVERY 3 WEEKS, INTRAVENOUS
     Route: 042
     Dates: start: 20071122, end: 20071122

REACTIONS (2)
  - BACK PAIN [None]
  - CHEST PAIN [None]
